FAERS Safety Report 17730688 (Version 2)
Quarter: 2021Q3

REPORT INFORMATION
  Report Type: Spontaneous
  Country: DK (occurrence: DK)
  Receive Date: 20200430
  Receipt Date: 20210713
  Transmission Date: 20211014
  Serious: Yes (Hospitalization, Other)
  Sender: FDA-Public Use
  Company Number: DK-MYLANLABS-2020M1042442

PATIENT
  Age: 33 Year
  Sex: Female

DRUGS (1)
  1. LOPERAMIDE [Suspect]
     Active Substance: LOPERAMIDE
     Indication: PRODUCT USED FOR UNKNOWN INDICATION
     Dosage: 160 MILLIGRAM, QD,EQUIVALENT TO TEN TIMES THE MAXIMUM RECOMMENDED DOSE

REACTIONS (14)
  - Headache [Recovered/Resolved]
  - Abdominal discomfort [Unknown]
  - Rhinorrhoea [Unknown]
  - Aggression [Recovered/Resolved]
  - Musculoskeletal stiffness [Recovered/Resolved]
  - Drug abuse [Unknown]
  - Drug withdrawal syndrome [Recovered/Resolved]
  - Myalgia [Unknown]
  - Intentional overdose [Recovered/Resolved]
  - Tachycardia [Unknown]
  - Diarrhoea [Unknown]
  - Constipation [Recovered/Resolved]
  - Hyperhidrosis [Unknown]
  - Anxiety [Unknown]
